FAERS Safety Report 6177606-5 (Version None)
Quarter: 2009Q2

REPORT INFORMATION
  Report Type: 
  Country: None (occurrence: None)
  Receive Date: 20090504
  Receipt Date: 20090430
  Transmission Date: 20091009
  Serious: No
  Sender: FDA-Public Use
  Company Number: US-B.I. PHARMACEUTICALS,INC./RIDGEFIELD-2009-BP-04693BP

PATIENT
  Sex: Female

DRUGS (9)
  1. MIRAPEX [Suspect]
     Indication: RESTLESS LEGS SYNDROME
  2. REQUIP [Suspect]
     Indication: RESTLESS LEGS SYNDROME
  3. LISINOPRIL [Concomitant]
  4. CLONIDINE [Concomitant]
  5. VERAPIMIL SR [Concomitant]
  6. HYDROCHLOROTHIAZIDE [Concomitant]
  7. LIPITOR [Concomitant]
  8. PERCOCET [Concomitant]
  9. DARVOCET [Concomitant]

REACTIONS (1)
  - RESTLESS LEGS SYNDROME [None]
